FAERS Safety Report 11427999 (Version 2)
Quarter: 2015Q4

REPORT INFORMATION
  Report Type: Spontaneous
  Country: NL (occurrence: NL)
  Receive Date: 20150828
  Receipt Date: 20151002
  Transmission Date: 20160304
  Serious: Yes (Death)
  Sender: FDA-Public Use
  Company Number: NL-009507513-1508NLD012478

PATIENT

DRUGS (1)
  1. GALVUS [Suspect]
     Active Substance: VILDAGLIPTIN
     Dosage: UNK

REACTIONS (1)
  - Hepatic infection [Fatal]
